FAERS Safety Report 9116561 (Version 1)
Quarter: 2013Q1

REPORT INFORMATION
  Report Type: Report from Study
  Country: JP (occurrence: JP)
  Receive Date: 20130225
  Receipt Date: 20130225
  Transmission Date: 20140127
  Serious: Yes (Death)
  Sender: FDA-Public Use
  Company Number: JP-GILEAD-2012-0061026

PATIENT
  Sex: Female

DRUGS (21)
  1. AMBRISENTAN [Suspect]
     Indication: PULMONARY ARTERIAL HYPERTENSION
     Dosage: 2.5 MG, QD
     Route: 048
     Dates: start: 20120419, end: 20120901
  2. CARELOAD [Concomitant]
     Indication: PULMONARY ARTERIAL HYPERTENSION
     Route: 048
  3. PROGRAF [Concomitant]
     Route: 048
  4. PROGRAF [Concomitant]
     Route: 048
  5. PREDONINE                          /00016201/ [Concomitant]
     Route: 048
  6. RIMATIL [Concomitant]
     Route: 048
     Dates: end: 201206
  7. BONALON [Concomitant]
     Route: 048
  8. BONALON [Concomitant]
     Route: 048
  9. D ALFA [Concomitant]
     Route: 048
  10. TAKEPRON [Concomitant]
     Route: 048
  11. TAKEPRON [Concomitant]
     Route: 048
  12. ACICLOVIR [Concomitant]
     Route: 048
  13. MYSLEE [Concomitant]
     Route: 048
  14. MYSLEE [Concomitant]
     Route: 048
  15. EURODIN                            /00401202/ [Concomitant]
     Route: 048
  16. CARELOAD [Concomitant]
     Indication: PULMONARY ARTERIAL HYPERTENSION
     Route: 048
  17. PREDONINE                          /00016201/ [Concomitant]
     Route: 048
  18. ALFACALCIDOL [Concomitant]
     Route: 048
  19. ACYCLOVIR                          /00587301/ [Concomitant]
     Route: 048
  20. EURODIN                            /00425901/ [Concomitant]
     Route: 048
  21. BAKTAR [Concomitant]
     Indication: ANTIFUNGAL PROPHYLAXIS
     Route: 048

REACTIONS (1)
  - Death [Fatal]
